FAERS Safety Report 9453210 (Version 1)
Quarter: 2013Q3

REPORT INFORMATION
  Report Type: Spontaneous
  Country: US (occurrence: US)
  Receive Date: 20130812
  Receipt Date: 20130812
  Transmission Date: 20140515
  Serious: Yes (Hospitalization)
  Sender: FDA-Public Use
  Company Number: US-PFIZER INC-2013232205

PATIENT
  Sex: 0

DRUGS (1)
  1. DILANTIN-125 [Suspect]
     Dosage: 100 MG, 3X/DAY

REACTIONS (1)
  - Drug level below therapeutic [Unknown]
